FAERS Safety Report 6697711-4 (Version None)
Quarter: 2010Q2

REPORT INFORMATION
  Report Type: 
  Country: None (occurrence: None)
  Receive Date: 20100423
  Receipt Date: 20100415
  Transmission Date: 20101027
  Serious: Yes (Other)
  Sender: FDA-Public Use
  Company Number: 2010US001263

PATIENT

DRUGS (2)
  1. PROGRAF [Suspect]
     Indication: HEART TRANSPLANT
  2. PROGRAF [Suspect]
     Indication: LIVER TRANSPLANT

REACTIONS (1)
  - PAROTIDECTOMY [None]
